FAERS Safety Report 16454283 (Version 1)
Quarter: 2019Q2

REPORT INFORMATION
  Report Type: Spontaneous
  Country: RU (occurrence: RU)
  Receive Date: 20190619
  Receipt Date: 20190619
  Transmission Date: 20190711
  Serious: Yes (Other)
  Sender: FDA-Public Use
  Company Number: PHHY2019RU139344

PATIENT
  Sex: Female

DRUGS (3)
  1. MYCOPHENOLATE MOFETIL. [Suspect]
     Active Substance: MYCOPHENOLATE MOFETIL
     Indication: PSTPIP1-ASSOCIATED MYELOID-RELATED PROTEINAEMIA INFLAMMATORY SYNDROME
     Dosage: UNK
     Route: 065
  2. RAPAMYCIN [Suspect]
     Active Substance: SIROLIMUS
     Indication: PSTPIP1-ASSOCIATED MYELOID-RELATED PROTEINAEMIA INFLAMMATORY SYNDROME
     Route: 065
  3. IMMUNOGLOBULIN I.V [Suspect]
     Active Substance: HUMAN IMMUNOGLOBULIN G
     Indication: PSTPIP1-ASSOCIATED MYELOID-RELATED PROTEINAEMIA INFLAMMATORY SYNDROME
     Route: 065

REACTIONS (2)
  - Drug ineffective for unapproved indication [Unknown]
  - Myelodysplastic syndrome [Unknown]
